FAERS Safety Report 12768720 (Version 1)
Quarter: 2016Q3

REPORT INFORMATION
  Report Type: Spontaneous
  Country: US (occurrence: US)
  Receive Date: 20160921
  Receipt Date: 20160921
  Transmission Date: 20161109
  Serious: No
  Sender: FDA-Public Use
  Company Number: US-JAZZ-2016-US-010120

PATIENT
  Sex: Female

DRUGS (14)
  1. ORSYTHIA [Concomitant]
     Active Substance: ETHINYL ESTRADIOL\LEVONORGESTREL
  2. LEXAPRO [Concomitant]
     Active Substance: ESCITALOPRAM OXALATE
  3. MODAFINIL. [Concomitant]
     Active Substance: MODAFINIL
  4. DOXEPIN [Concomitant]
     Active Substance: DOXEPIN
  5. CYMBALTA [Concomitant]
     Active Substance: DULOXETINE HYDROCHLORIDE
  6. LYRICA [Concomitant]
     Active Substance: PREGABALIN
  7. XYREM [Suspect]
     Active Substance: SODIUM OXYBATE
     Indication: NARCOLEPSY
     Dosage: 2.25 G, BID
     Route: 048
     Dates: start: 200412, end: 200501
  8. XYREM [Suspect]
     Active Substance: SODIUM OXYBATE
     Dosage: 3 G, BID
     Route: 048
     Dates: start: 200501, end: 200506
  9. CONCERTA [Concomitant]
     Active Substance: METHYLPHENIDATE HYDROCHLORIDE
  10. ZOLPIDEM TARTRATE. [Concomitant]
     Active Substance: ZOLPIDEM TARTRATE
  11. XYREM [Suspect]
     Active Substance: SODIUM OXYBATE
     Dosage: 4.5 G, BID
     Route: 048
     Dates: start: 200506
  12. ELIQUIS [Concomitant]
     Active Substance: APIXABAN
  13. HYDROQUINONE. [Concomitant]
     Active Substance: HYDROQUINONE
  14. CLINDAMYCIN [Concomitant]
     Active Substance: CLINDAMYCIN\CLINDAMYCIN PHOSPHATE

REACTIONS (1)
  - Dysmenorrhoea [Unknown]
